FAERS Safety Report 10331899 (Version 2)
Quarter: 2014Q4

REPORT INFORMATION
  Report Type: Report from Study
  Country: US (occurrence: US)
  Receive Date: 20140722
  Receipt Date: 20141027
  Transmission Date: 20150528
  Serious: Yes (Hospitalization)
  Sender: FDA-Public Use
  Company Number: US-PFIZER INC-2014197179

PATIENT
  Age: 31 Year
  Sex: Female
  Weight: 78.2 kg

DRUGS (21)
  1. ONDANSETRON [Concomitant]
     Active Substance: ONDANSETRON
     Dosage: 16 MG, AS NEEDED
     Route: 048
     Dates: start: 20140312
  2. COLACE [Concomitant]
     Active Substance: DOCUSATE SODIUM
     Dosage: UNK, AS NEEDED
     Route: 048
     Dates: start: 20140704
  3. OXYCODONE HYDROCHLORIDE. [Suspect]
     Active Substance: OXYCODONE HYDROCHLORIDE
     Dosage: 3 X 20MG PILLS
  4. TEMSIROLIMUS [Suspect]
     Active Substance: TEMSIROLIMUS
     Dosage: 25 MG, WEEKLY
     Route: 042
     Dates: start: 20140428, end: 20140616
  5. OXYCONTIN [Suspect]
     Active Substance: OXYCODONE HYDROCHLORIDE
     Dosage: TWICE THE RECOMMENDED DOSE (80 MG)
  6. TRIAMCINOLONE [Concomitant]
     Active Substance: TRIAMCINOLONE
     Dosage: 0.1 %, 2X/DAY
     Route: 061
     Dates: start: 20140310
  7. OXYCODONE HYDROCHLORIDE. [Suspect]
     Active Substance: OXYCODONE HYDROCHLORIDE
     Indication: CANCER PAIN
     Dosage: 40 MG, Q2HR PRN (OXYCODONE IMMEDIATE RELEASE 60 MG)
     Route: 048
     Dates: start: 20140623
  8. TARCEVA [Suspect]
     Active Substance: ERLOTINIB HYDROCHLORIDE
     Dosage: 100 MG, 1X/DAY
     Route: 048
     Dates: start: 20140303, end: 20140422
  9. MAGIC MOUTHWASH [Concomitant]
     Active Substance: DIPHENHYDRAMINE HYDROCHLORIDE\LIDOCAINE HYDROCHLORIDE\NYSTATIN
     Dosage: 5 ML, AS NEEDED
     Dates: start: 20140407
  10. DESONIDE. [Concomitant]
     Active Substance: DESONIDE
     Dosage: 0.05 %, 2X/DAY AS NEEDED
     Route: 061
     Dates: start: 20140408
  11. SERTRALINE [Concomitant]
     Active Substance: SERTRALINE HYDROCHLORIDE
     Dosage: 50 MG, 1X/DAY
     Route: 048
     Dates: start: 20140512
  12. DEXAMETHASONE. [Concomitant]
     Active Substance: DEXAMETHASONE
     Dosage: 2 MG, 3X/DAY
     Route: 048
     Dates: start: 20140623
  13. TEMSIROLIMUS [Suspect]
     Active Substance: TEMSIROLIMUS
     Dosage: 25 MG, WEEKLY
     Route: 042
     Dates: start: 20140310, end: 20140414
  14. OXYCONTIN [Suspect]
     Active Substance: OXYCODONE HYDROCHLORIDE
     Indication: CANCER PAIN
     Dosage: 30 MG, 2X/DAY (EXTENDED RELEASE)
     Route: 048
     Dates: start: 20140607
  15. XANAX [Concomitant]
     Active Substance: ALPRAZOLAM
     Dosage: 0.5 MG, 3X/DAY
     Route: 048
     Dates: start: 20140606
  16. ACETAMINOPHEN W/OXYCODONE [Concomitant]
     Active Substance: ACETAMINOPHEN\OXYCODONE HYDROCHLORIDE
     Dosage: OXYCODONE HYDROCHLORIDE 5MG-PARACETAMOL 325MG, 3X/DAY
     Route: 048
     Dates: start: 201307
  17. TYLENOL [Concomitant]
     Active Substance: ACETAMINOPHEN
     Dosage: 1000 MG, 4X/DAY (Q6HR)
     Route: 048
     Dates: start: 20140305
  18. PROCHLORPERAZINE. [Concomitant]
     Active Substance: PROCHLORPERAZINE
     Dosage: 10 MG, AS NEEDED
     Route: 048
     Dates: start: 20140324
  19. TARCEVA [Suspect]
     Active Substance: ERLOTINIB HYDROCHLORIDE
     Dosage: 100 MG, 1X/DAY
     Route: 048
     Dates: start: 20140428, end: 20140616
  20. TARCEVA [Suspect]
     Active Substance: ERLOTINIB HYDROCHLORIDE
     Dosage: 100 MG, 1X/DAY
     Route: 048
     Dates: start: 20140710, end: 20140710
  21. GABAPENTIN. [Concomitant]
     Active Substance: GABAPENTIN
     Dosage: 1200 MG, 3X/DAY
     Route: 048
     Dates: start: 20140606

REACTIONS (1)
  - Syncope [Recovered/Resolved]

NARRATIVE: CASE EVENT DATE: 20140712
